FAERS Safety Report 9084529 (Version 1)
Quarter: 2013Q1

REPORT INFORMATION
  Report Type: Report from Study
  Country: GB (occurrence: UG)
  Receive Date: 20130130
  Receipt Date: 20130130
  Transmission Date: 20140127
  Serious: Yes (Death)
  Sender: FDA-Public Use
  Company Number: UG-B.I. PHARMACEUTICALS,INC./RIDGEFIELD-2013-BI-01256GD

PATIENT
  Sex: 0

DRUGS (2)
  1. NEVIRAPINE [Suspect]
     Indication: HIV INFECTION
  2. ZIDOVUDINE/LAMIVUDINE [Concomitant]
     Indication: HIV INFECTION

REACTIONS (1)
  - Hepatic failure [Fatal]
